FAERS Safety Report 6515293-4 (Version None)
Quarter: 2009Q4

REPORT INFORMATION
  Report Type: 
  Country: None (occurrence: None)
  Receive Date: 20091223
  Receipt Date: 20091215
  Transmission Date: 20100525
  Serious: Yes (Hospitalization)
  Sender: FDA-Public Use
  Company Number: JP-ROCHE-672098

PATIENT
  Sex: Male

DRUGS (3)
  1. TAMIFLU [Suspect]
     Indication: INFLUENZA
     Route: 050
     Dates: start: 20091109, end: 20091113
  2. TAMIFLU [Suspect]
     Route: 050
     Dates: start: 20091110, end: 20091113
  3. TAMIFLU [Suspect]
     Route: 050
     Dates: start: 20091114, end: 20091114

REACTIONS (2)
  - GASTRIC ULCER [None]
  - OESOPHAGEAL ULCER [None]
